FAERS Safety Report 13787038 (Version 1)
Quarter: 2017Q3

REPORT INFORMATION
  Report Type: Spontaneous
  Country: US (occurrence: US)
  Receive Date: 20170725
  Receipt Date: 20170725
  Transmission Date: 20171127
  Serious: Yes (Hospitalization)
  Sender: FDA-Public Use
  Company Number: None

PATIENT
  Age: 84 Year
  Sex: Female
  Weight: 68.1 kg

DRUGS (13)
  1. CIPRO [Suspect]
     Active Substance: CIPROFLOXACIN HYDROCHLORIDE
     Indication: URINARY TRACT INFECTION
     Dosage: 500 5  1-PER DAY 5 DAYS ORALY AT HOME IV AT HOSPITAL
     Dates: start: 20160312, end: 20160513
  2. GABAPENTIN. [Concomitant]
     Active Substance: GABAPENTIN
  3. GLUKOSAMINE [Concomitant]
  4. COQ10 [Concomitant]
     Active Substance: UBIDECARENONE
  5. ATENOLOL. [Concomitant]
     Active Substance: ATENOLOL
  6. B12 VITIMAN [Concomitant]
  7. AMLODIPINE [Concomitant]
     Active Substance: AMLODIPINE BESYLATE
  8. SUCRALFATE. [Concomitant]
     Active Substance: SUCRALFATE
  9. 81MG ASPIRIN [Concomitant]
  10. TYNAL [Concomitant]
  11. LEVOTHYRONXINE [Concomitant]
  12. TOLTERODINE [Concomitant]
     Active Substance: TOLTERODINE
  13. VITAMIN [Concomitant]
     Active Substance: VITAMINS

REACTIONS (2)
  - Hallucination [None]
  - Malaise [None]

NARRATIVE: CASE EVENT DATE: 20160312
